FAERS Safety Report 9264873 (Version 1)
Quarter: 2013Q2

REPORT INFORMATION
  Report Type: Spontaneous
  Country: US (occurrence: None)
  Receive Date: 20130425
  Receipt Date: 20130425
  Transmission Date: 20140414
  Serious: Yes (Hospitalization)
  Sender: FDA-Public Use
  Company Number: US-DEXPHARM-20130168

PATIENT
  Age: 57 Year
  Sex: Female
  Weight: 80.73 kg

DRUGS (7)
  1. OMEPRAZOLE [Suspect]
     Indication: GASTROOESOPHAGEAL REFLUX DISEASE
     Dosage: 20 MG ONCE A DAY, ORAL
     Route: 048
     Dates: start: 201201, end: 2012
  2. OMEPRAZOLE [Suspect]
     Indication: GASTROOESOPHAGEAL REFLUX DISEASE
     Dosage: 20 MG ONCE A DAY, ORAL
     Route: 048
     Dates: start: 2012, end: 2012
  3. OMEPRAZOLE [Suspect]
     Indication: GASTROOESOPHAGEAL REFLUX DISEASE
     Dosage: 10 MG ONCE A DAY, ORAL
     Route: 048
     Dates: start: 2012, end: 2012
  4. LOVASTATIN [Concomitant]
  5. MICARDIS HCT [Concomitant]
  6. PROZAC [Concomitant]
  7. CLONAZEPAM [Concomitant]

REACTIONS (4)
  - Dry mouth [None]
  - Constipation [None]
  - Abdominal pain upper [None]
  - Arthralgia [None]
